FAERS Safety Report 10795016 (Version 3)
Quarter: 2015Q1

REPORT INFORMATION
  Report Type: Spontaneous
  Country: US (occurrence: US)
  Receive Date: 20150214
  Receipt Date: 20150216
  Transmission Date: 20150721
  Serious: No
  Sender: FDA-Public Use
  Company Number: US-GLAXOSMITHKLINE-A1066066A

PATIENT

DRUGS (1)
  1. NICODERM CQ [Suspect]
     Active Substance: NICOTINE
     Indication: EX-TOBACCO USER
     Dates: start: 20140317, end: 20140319

REACTIONS (12)
  - Overdose [Unknown]
  - Pruritus [Unknown]
  - Rash macular [Unknown]
  - Pain [Unknown]
  - Pruritus generalised [Unknown]
  - Rash [Unknown]
  - Rash papular [Unknown]
  - Expired product administered [Unknown]
  - Energy increased [Unknown]
  - Psychomotor hyperactivity [Not Recovered/Not Resolved]
  - Abnormal dreams [Unknown]
  - Nightmare [Unknown]
